FAERS Safety Report 6692383-7 (Version None)
Quarter: 2010Q2

REPORT INFORMATION
  Report Type: 
  Country: None (occurrence: None)
  Receive Date: 20100419
  Receipt Date: 20100405
  Transmission Date: 20101027
  Serious: Yes (Hospitalization)
  Sender: FDA-Public Use
  Company Number: ALD1-JP-2010-0014

PATIENT
  Age: 40 Year
  Sex: Female

DRUGS (1)
  1. ALDOMET [Suspect]
     Dosage: PER ORAL
     Route: 048
     Dates: start: 20080601, end: 20080601

REACTIONS (1)
  - LIVER DISORDER [None]
